FAERS Safety Report 15708522 (Version 1)
Quarter: 2018Q4

REPORT INFORMATION
  Report Type: Spontaneous
  Country: US (occurrence: US)
  Receive Date: 20181211
  Receipt Date: 20181211
  Transmission Date: 20190205
  Serious: No
  Sender: FDA-Public Use
  Company Number: US-SHIRE-US201847718

PATIENT
  Sex: Female

DRUGS (2)
  1. GATTEX [Suspect]
     Active Substance: TEDUGLUTIDE\WATER
     Indication: PRODUCT USED FOR UNKNOWN INDICATION
     Route: 065
  2. TPN [Concomitant]
     Active Substance: AMINO ACIDS\DEXTROSE\ELECTROLYTES NOS\SOYBEAN OIL
     Indication: PRODUCT USED FOR UNKNOWN INDICATION

REACTIONS (1)
  - Drug ineffective [Unknown]
